FAERS Safety Report 15166416 (Version 1)
Quarter: 2018Q3

REPORT INFORMATION
  Report Type: Spontaneous
  Country: US (occurrence: US)
  Receive Date: 20180719
  Receipt Date: 20180719
  Transmission Date: 20181010
  Serious: No
  Sender: FDA-Public Use
  Company Number: US-OTSUKA-2018_014353

PATIENT
  Age: 32 Year
  Sex: Female

DRUGS (1)
  1. REXULTI [Suspect]
     Active Substance: BREXPIPRAZOLE
     Indication: BIPOLAR DISORDER
     Dosage: 0.375 MG, QD
     Route: 065

REACTIONS (5)
  - Prescribed underdose [Unknown]
  - Depression [Not Recovered/Not Resolved]
  - Product use in unapproved indication [Unknown]
  - Wrong technique in product usage process [Unknown]
  - Insurance issue [Unknown]
